FAERS Safety Report 18189352 (Version 1)
Quarter: 2020Q3

REPORT INFORMATION
  Report Type: Spontaneous
  Country: US (occurrence: US)
  Receive Date: 20200824
  Receipt Date: 20200824
  Transmission Date: 20201103
  Serious: No
  Sender: FDA-Public Use
  Company Number: US-PAIPHARMA-2020-US-006717

PATIENT
  Age: 83 Year
  Sex: Male
  Weight: 90.72 kg

DRUGS (7)
  1. LACTULOSE SOLUTION USP, AF [Suspect]
     Active Substance: LACTULOSE
     Indication: CONSTIPATION
     Dosage: 15 ML ? 30 ML DAILY
     Route: 048
     Dates: start: 20200325
  2. CARTIA [Concomitant]
  3. TRAZODONE [Concomitant]
     Active Substance: TRAZODONE HYDROCHLORIDE
  4. UNSPECIFIED ANTACID [Concomitant]
     Active Substance: UNSPECIFIED INGREDIENT
  5. CALCIUM CARBONATE. [Concomitant]
     Active Substance: CALCIUM CARBONATE
  6. CLONIDINE. [Concomitant]
     Active Substance: CLONIDINE
  7. AMLODIPINE [Concomitant]
     Active Substance: AMLODIPINE BESYLATE

REACTIONS (1)
  - Pollakiuria [Not Recovered/Not Resolved]

NARRATIVE: CASE EVENT DATE: 20200326
